FAERS Safety Report 6330255-8 (Version None)
Quarter: 2009Q3

REPORT INFORMATION
  Report Type: 
  Country: None (occurrence: None)
  Receive Date: 20090827
  Receipt Date: 20090511
  Transmission Date: 20100115
  Serious: No
  Sender: FDA-Public Use
  Company Number: US-KINGPHARMUSA00001-K200900575

PATIENT
  Sex: Female

DRUGS (4)
  1. FLECTOR [Suspect]
     Indication: NECK PAIN
     Dosage: 1 PATCH, BID
     Route: 061
     Dates: start: 20090401
  2. SKELAXIN [Concomitant]
     Dosage: UNK
  3. PERCOCET [Concomitant]
     Dosage: UNK
  4. FENTANYL [Concomitant]
     Dosage: UNK

REACTIONS (2)
  - GLOSSODYNIA [None]
  - TONGUE DISORDER [None]
